FAERS Safety Report 10388250 (Version 4)
Quarter: 2015Q1

REPORT INFORMATION
  Report Type: Spontaneous
  Country: US (occurrence: US)
  Receive Date: 20140815
  Receipt Date: 20150102
  Transmission Date: 20150720
  Serious: Yes (Hospitalization, Other)
  Sender: FDA-Public Use
  Company Number: US-ACTELION-A-NJ2014-102136

PATIENT
  Age: 73 Year
  Sex: Female

DRUGS (2)
  1. VELETRI [Suspect]
     Active Substance: EPOPROSTENOL
     Indication: PULMONARY ARTERIAL HYPERTENSION
     Dosage: 26 NG/KG, PER MIN
     Route: 042
     Dates: start: 20110630
  2. ADCIRCA [Concomitant]
     Active Substance: TADALAFIL

REACTIONS (9)
  - Diarrhoea [Unknown]
  - Transfusion [Unknown]
  - Adrenal cyst [Unknown]
  - Catheter site pain [Recovering/Resolving]
  - Haemorrhage [Unknown]
  - Abdominal pain lower [Unknown]
  - Haematochezia [Unknown]
  - Catheter site discharge [Unknown]
  - Anaemia [Unknown]

NARRATIVE: CASE EVENT DATE: 20140708
